FAERS Safety Report 11953565 (Version 11)
Quarter: 2020Q3

REPORT INFORMATION
  Report Type: Report from Study
  Country: ES (occurrence: ES)
  Receive Date: 20160126
  Receipt Date: 20170712
  Transmission Date: 20201104
  Serious: Yes (Life-Threatening, Hospitalization)
  Sender: FDA-Public Use
  Company Number: ES-JNJFOC-20160119329

PATIENT
  Age: 76 Year
  Sex: Male
  Weight: 82 kg

DRUGS (14)
  1. DARATUMUMAB [Suspect]
     Active Substance: DARATUMUMAB
     Route: 042
  2. MELPHALAN. [Concomitant]
     Active Substance: MELPHALAN
     Indication: PLASMA CELL MYELOMA
     Dosage: 4 TIMES FOR A MONTH
     Route: 048
     Dates: start: 20151216
  3. METFORMIN [Concomitant]
     Active Substance: METFORMIN HYDROCHLORIDE
     Indication: CARBOHYDRATE INTOLERANCE
     Route: 048
     Dates: start: 20120925, end: 20160126
  4. ROSUVASTATIN. [Concomitant]
     Active Substance: ROSUVASTATIN
  5. ADIRO [Concomitant]
     Active Substance: ASPIRIN
  6. VELCADE [Concomitant]
     Active Substance: BORTEZOMIB
     Indication: PLASMA CELL MYELOMA
     Dosage: 8 TIMES FOR A MONTH, CYCLE 1 DAY1, 4, 8, 11, 22, 25, 29, 32
     Route: 058
     Dates: start: 20151216
  7. OMEPRAZOLE. [Concomitant]
     Active Substance: OMEPRAZOLE
  8. ACETYLCYSTEINE. [Concomitant]
     Active Substance: ACETYLCYSTEINE
     Indication: SPINAL CORD COMPRESSION
     Route: 055
     Dates: start: 20151210, end: 20160126
  9. DEXAMETHASONE. [Concomitant]
     Active Substance: DEXAMETHASONE
     Indication: PLASMA CELL MYELOMA
     Route: 042
     Dates: start: 20151215
  10. DARATUMUMAB [Suspect]
     Active Substance: DARATUMUMAB
     Indication: PLASMA CELL MYELOMA
     Dosage: 6 TIMES FOR A MONTH, CYCLE 1 DAY 1, 8, 15, 22, 22, 36
     Route: 042
     Dates: start: 20151215
  11. CO?RENITEC [Concomitant]
     Active Substance: ENALAPRIL\HYDROCHLOROTHIAZIDE
  12. ONDANSETRON [Concomitant]
     Active Substance: ONDANSETRON
     Indication: SPINAL CORD COMPRESSION
     Route: 042
     Dates: start: 20151206, end: 20160126
  13. SIMVASTATIN. [Concomitant]
     Active Substance: SIMVASTATIN
     Indication: SPINAL CORD COMPRESSION
     Route: 048
     Dates: start: 20151203, end: 20160126
  14. ENOXAPARIN [Concomitant]
     Active Substance: ENOXAPARIN
     Indication: SPINAL CORD COMPRESSION
     Route: 058
     Dates: start: 20151129, end: 20160126

REACTIONS (1)
  - Respiratory failure [Recovered/Resolved]

NARRATIVE: CASE EVENT DATE: 20160121
